FAERS Safety Report 21391726 (Version 1)
Quarter: 2022Q3

REPORT INFORMATION
  Report Type: Spontaneous
  Country: US (occurrence: None)
  Receive Date: 20220928
  Receipt Date: 20220928
  Transmission Date: 20221027
  Serious: Yes (Disabling)
  Sender: FDA-Public Use
  Company Number: None

PATIENT
  Sex: Male
  Weight: 128.7 kg

DRUGS (4)
  1. ZYPREXA [Suspect]
     Active Substance: OLANZAPINE
     Indication: Schizophrenia
  2. ABILIFY [Suspect]
     Active Substance: ARIPIPRAZOLE
  3. HALDOL [Suspect]
     Active Substance: HALOPERIDOL
  4. INVEGA [Suspect]
     Active Substance: PALIPERIDONE

REACTIONS (7)
  - Seizure [None]
  - Mental disorder [None]
  - Memory impairment [None]
  - Weight increased [None]
  - Prostatic pain [None]
  - Libido decreased [None]
  - Organic erectile dysfunction [None]
